FAERS Safety Report 7001755-2 (Version None)
Quarter: 2010Q3

REPORT INFORMATION
  Report Type: 
  Country: None (occurrence: None)
  Receive Date: 20100920
  Receipt Date: 20100412
  Transmission Date: 20110219
  Serious: Yes (Hospitalization)
  Sender: FDA-Public Use
  Company Number: US-ASTRAZENECA-2007UW04263

PATIENT
  Age: 2216 Day
  Sex: Female
  Weight: 20.9 kg

DRUGS (19)
  1. SEROQUEL [Suspect]
     Indication: BIPOLAR DISORDER
     Route: 048
     Dates: start: 20040927, end: 20041028
  2. SEROQUEL [Suspect]
     Indication: ATTENTION DEFICIT/HYPERACTIVITY DISORDER
     Route: 048
     Dates: start: 20040927, end: 20041028
  3. ZYPREXA [Suspect]
     Route: 065
     Dates: start: 20040616, end: 20040901
  4. ZYPREXA [Suspect]
     Route: 065
     Dates: start: 20040618
  5. STRATTERA [Concomitant]
     Route: 048
  6. RISPERDAL [Concomitant]
     Dates: start: 20051024, end: 20060103
  7. RISPERDAL [Concomitant]
     Dates: start: 20060131
  8. TRILEPTAL [Concomitant]
     Dosage: 300MG IN 5ML SUSPENSION
     Dates: start: 20050119
  9. TRILEPTAL [Concomitant]
     Dosage: 300MG IN 5ML SUSPENSION
     Dates: start: 20050414
  10. TRILEPTAL [Concomitant]
     Dosage: 300MG IN 5ML SUSPENSION
     Dates: start: 20050602
  11. TRILEPTAL [Concomitant]
     Dosage: 300MG IN 5ML SUSPENSION
     Dates: start: 20050830
  12. TRILEPTAL [Concomitant]
     Dosage: 300MG IN 5ML SUSPENSION
     Dates: start: 20051024
  13. TRILEPTAL [Concomitant]
     Dosage: 300MG IN 5ML SUSPENSION
     Dates: start: 20051212
  14. TRILEPTAL [Concomitant]
     Dosage: 300MG IN 5ML SUSPENSION
     Dates: start: 20060411
  15. TRILEPTAL [Concomitant]
     Dosage: 300MG PER TSP ONE HALF EVERY MORNING AND ONE HALF TSP AT 2 PM
     Dates: start: 20061204
  16. TAMIFLU [Concomitant]
     Dosage: 12 MG/ML
     Dates: start: 20060217
  17. IMIPRAM HCL [Concomitant]
  18. CONCERTA [Concomitant]
     Dates: start: 20041013
  19. TRAZODONE HCL [Concomitant]
     Dosage: 50 MG ONE HALF TO ONE AT BEDTIME AS REQUIRED
     Dates: start: 20061204

REACTIONS (2)
  - DIABETES MELLITUS [None]
  - TYPE 1 DIABETES MELLITUS [None]
